FAERS Safety Report 4609997-8 (Version None)
Quarter: 2005Q1

REPORT INFORMATION
  Report Type: 
  Country: None (occurrence: None)
  Receive Date: 20050315
  Receipt Date: 20050303
  Transmission Date: 20050727
  Serious: Yes (Other)
  Sender: FDA-Public Use
  Company Number: HQWYE873207MAR05

PATIENT
  Age: 54 Year
  Sex: Female

DRUGS (3)
  1. EFEXOR XR (VENLAFAXINE HYDROCHLORIDE, CAPSULE, EXTENDED RELEASE) LOT N [Suspect]
     Indication: DEPRESSION
     Dosage: 75 MG ,ORAL
     Route: 048
     Dates: start: 20041001
  2. SYNTHROID [Concomitant]
  3. LEXOTAN (BROMAZEPAM) [Concomitant]

REACTIONS (15)
  - ALOPECIA [None]
  - ARTHRALGIA [None]
  - BLOOD CHOLESTEROL INCREASED [None]
  - DRY MOUTH [None]
  - HYPERHIDROSIS [None]
  - HYPOAESTHESIA [None]
  - INCREASED APPETITE [None]
  - MENTAL DISORDER [None]
  - MIGRAINE [None]
  - MOUTH HAEMORRHAGE [None]
  - PRURITUS [None]
  - REFLEXES ABNORMAL [None]
  - RETINAL DETACHMENT [None]
  - SOMNOLENCE [None]
  - VULVOVAGINAL DRYNESS [None]
